FAERS Safety Report 16460807 (Version 1)
Quarter: 2019Q2

REPORT INFORMATION
  Report Type: Report from Study
  Country: PK (occurrence: PK)
  Receive Date: 20190620
  Receipt Date: 20190620
  Transmission Date: 20190711
  Serious: Yes (Death)
  Sender: FDA-Public Use
  Company Number: PHHY2019PK140389

PATIENT
  Age: 79 Year
  Sex: Male
  Weight: 44 kg

DRUGS (1)
  1. GLIVEC [Suspect]
     Active Substance: IMATINIB MESYLATE
     Indication: CHRONIC MYELOID LEUKAEMIA
     Dosage: 3 DF (100 MG) , QD
     Route: 048
     Dates: start: 20171219, end: 20180404

REACTIONS (1)
  - Death [Fatal]

NARRATIVE: CASE EVENT DATE: 20180720
